FAERS Safety Report 5583128-2 (Version None)
Quarter: 2008Q1

REPORT INFORMATION
  Report Type: 
  Country: None (occurrence: None)
  Receive Date: 20080107
  Receipt Date: 20071227
  Transmission Date: 20080703
  Serious: Yes (Other)
  Sender: FDA-Public Use
  Company Number: US-WYE-H01894908

PATIENT
  Sex: Male

DRUGS (11)
  1. SIROLIMUS [Suspect]
     Indication: RENAL CELL CARCINOMA
     Route: 048
     Dates: start: 20070322, end: 20071129
  2. ATORVASTATIN [Concomitant]
  3. LORATADINE [Concomitant]
  4. PLAVIX [Concomitant]
  5. FUROSEMIDE [Concomitant]
     Dosage: UNKNOWN
     Route: 065
     Dates: start: 20070802
  6. COMPAZINE [Concomitant]
  7. ACETYLSALICYLIC ACID SRT [Concomitant]
  8. PERCOCET [Concomitant]
  9. PROMETHAZINE [Concomitant]
  10. TARCEVA [Suspect]
     Indication: RENAL CELL CARCINOMA
     Route: 048
     Dates: start: 20070315, end: 20071129
  11. ACIPHEX [Concomitant]

REACTIONS (1)
  - EJECTION FRACTION DECREASED [None]
